FAERS Safety Report 4667811-9 (Version None)
Quarter: 2005Q2

REPORT INFORMATION
  Report Type: 
  Country: None (occurrence: None)
  Receive Date: 20050520
  Receipt Date: 20050107
  Transmission Date: 20051028
  Serious: Yes (Other)
  Sender: FDA-Public Use
  Company Number: US-MERCK-0501USA00923

PATIENT
  Age: 71 Year
  Sex: Male
  Weight: 99 kg

DRUGS (3)
  1. VIOXX [Suspect]
     Indication: EXOSTOSIS
     Route: 048
     Dates: start: 20000227, end: 20040901
  2. VIOXX [Suspect]
     Route: 048
     Dates: start: 20000227, end: 20040901
  3. XENICAL [Concomitant]
     Route: 065

REACTIONS (9)
  - ARTERIAL OCCLUSIVE DISEASE [None]
  - CARDIAC DISORDER [None]
  - CAROTID BRUIT [None]
  - CHEST PAIN [None]
  - ERECTILE DYSFUNCTION [None]
  - INTERMITTENT CLAUDICATION [None]
  - SKIN LACERATION [None]
  - VENTRICULAR HYPOKINESIA [None]
  - WEIGHT INCREASED [None]
